FAERS Safety Report 5881483-7 (Version None)
Quarter: 2008Q3

REPORT INFORMATION
  Report Type: 
  Country: None (occurrence: None)
  Receive Date: 20080910
  Receipt Date: 20080826
  Transmission Date: 20090109
  Serious: Yes (Hospitalization)
  Sender: FDA-Public Use
  Company Number: 94815

PATIENT
  Age: 26 Year
  Sex: Male

DRUGS (2)
  1. ACETAMINOPHEN [Suspect]
     Indication: OVERDOSE
     Dosage: 17.5 G
  2. BENZODIAZEPINE [Suspect]
     Indication: OVERDOSE

REACTIONS (2)
  - OVERDOSE [None]
  - PROTHROMBIN TIME PROLONGED [None]
